FAERS Safety Report 11060036 (Version 1)
Quarter: 2015Q2

REPORT INFORMATION
  Report Type: Spontaneous
  Country: US (occurrence: None)
  Receive Date: 20150422
  Receipt Date: 20150422
  Transmission Date: 20150821
  Serious: Yes (Other)
  Sender: FDA-Public Use
  Company Number: US-DRAXIINC-000278

PATIENT
  Age: 47 Year
  Sex: Female

DRUGS (1)
  1. SODIUM IODIDE I-131 (INN:SODIUM IODIDE (131)) [Suspect]
     Active Substance: SODIUM IODIDE I-131
     Indication: PAPILLARY THYROID CANCER
     Dosage: 1 X 600 MCI/ 1 TOTAL UNKNOWN

REACTIONS (2)
  - Second primary malignancy [None]
  - Salivary gland adenoma [None]

NARRATIVE: CASE EVENT DATE: 201006
